FAERS Safety Report 14080060 (Version 1)
Quarter: 2017Q4

REPORT INFORMATION
  Report Type: Spontaneous
  Country: US (occurrence: US)
  Receive Date: 20171012
  Receipt Date: 20171012
  Transmission Date: 20180321
  Serious: No
  Sender: FDA-Public Use
  Company Number: US-MYLANLABS-2017M1027387

PATIENT
  Sex: Male

DRUGS (1)
  1. FENTANYL TRANSDERMAL SYSTEM [Suspect]
     Active Substance: FENTANYL
     Indication: NEURALGIA
     Dosage: 1/3 OF PATCH CHANGED QD
     Route: 062
     Dates: end: 201705

REACTIONS (3)
  - Wrong technique in product usage process [Recovered/Resolved]
  - Drug effect increased [Recovered/Resolved]
  - Heart rate increased [Unknown]
